FAERS Safety Report 15898772 (Version 1)
Quarter: 2019Q1

REPORT INFORMATION
  Report Type: Report from Study
  Country: US (occurrence: US)
  Receive Date: 20190201
  Receipt Date: 20190201
  Transmission Date: 20190417
  Serious: Yes (Death, Hospitalization, Other)
  Sender: FDA-Public Use
  Company Number: US-ASTRAZENECA-2018SF15674

PATIENT
  Age: 26873 Day
  Sex: Male
  Weight: 63.5 kg

DRUGS (11)
  1. LYNPARZA [Suspect]
     Active Substance: OLAPARIB
     Indication: PROSTATE CANCER
     Route: 048
     Dates: start: 20180901
  2. LYNPARZA [Suspect]
     Active Substance: OLAPARIB
     Indication: BRCA2 GENE MUTATION
     Route: 048
     Dates: start: 20180901
  3. IRON [Concomitant]
     Active Substance: IRON
  4. LYNPARZA [Suspect]
     Active Substance: OLAPARIB
     Indication: BRCA2 GENE MUTATION
     Route: 048
     Dates: start: 20180831
  5. VITAMIN B12 [Concomitant]
     Active Substance: CYANOCOBALAMIN
  6. VITAMIN D3 [Concomitant]
     Active Substance: CHOLECALCIFEROL
  7. CALCIUM CARBONATE. [Concomitant]
     Active Substance: CALCIUM CARBONATE
  8. OMEGA 3 [Concomitant]
     Active Substance: OMEGA-3 FATTY ACIDS
  9. LYNPARZA [Suspect]
     Active Substance: OLAPARIB
     Indication: PROSTATE CANCER
     Route: 048
     Dates: start: 20180831
  10. MULTIVITAMINS [Concomitant]
     Active Substance: VITAMINS
  11. FOLIC ACID. [Concomitant]
     Active Substance: FOLIC ACID

REACTIONS (21)
  - Cerebral haemorrhage [Unknown]
  - Product use in unapproved indication [Unknown]
  - White blood cell count decreased [Unknown]
  - Gait disturbance [Unknown]
  - Product use complaint [Unknown]
  - Wrong technique in product usage process [Unknown]
  - Iron deficiency [Unknown]
  - Decreased appetite [Unknown]
  - Product dose omission [Unknown]
  - Red blood cell count decreased [Unknown]
  - Blood iron decreased [Unknown]
  - Anaemia [Unknown]
  - Haemoglobin decreased [Unknown]
  - Feeling abnormal [Unknown]
  - Asthenia [Unknown]
  - Palpitations [Unknown]
  - Off label use [Unknown]
  - Death [Fatal]
  - Metastases to central nervous system [Unknown]
  - Insomnia [Unknown]
  - Hypokinesia [Unknown]

NARRATIVE: CASE EVENT DATE: 20190127
